FAERS Safety Report 5888522-8 (Version None)
Quarter: 2008Q3

REPORT INFORMATION
  Report Type: 
  Country: None (occurrence: None)
  Receive Date: 20080918
  Receipt Date: 20080903
  Transmission Date: 20090109
  Serious: No
  Sender: FDA-Public Use
  Company Number: US-B.I. PHARMACEUTICALS,INC./RIDGEFIELD-2008-BP-14200BP

PATIENT
  Sex: Male

DRUGS (6)
  1. FLOMAX [Suspect]
     Indication: BENIGN PROSTATIC HYPERPLASIA
     Dosage: .8MG
     Route: 048
     Dates: start: 20080828
  2. FLOMAX [Suspect]
     Dosage: .4MG
     Route: 048
     Dates: start: 20070801, end: 20080827
  3. PRAVACHOL [Concomitant]
  4. PLAVIX [Concomitant]
  5. VASOTEC [Concomitant]
  6. CLONIDINE [Concomitant]

REACTIONS (3)
  - COUGH [None]
  - POLLAKIURIA [None]
  - RHINORRHOEA [None]
